FAERS Safety Report 17262607 (Version 1)
Quarter: 2020Q1

REPORT INFORMATION
  Report Type: Spontaneous
  Country: US (occurrence: US)
  Receive Date: 20200113
  Receipt Date: 20200113
  Transmission Date: 20200409
  Serious: No
  Sender: FDA-Public Use
  Company Number: US-BIOGEN-2019BI00720452

PATIENT
  Sex: Male

DRUGS (2)
  1. TECFIDERA [Suspect]
     Active Substance: DIMETHYL FUMARATE
     Indication: MULTIPLE SCLEROSIS
     Route: 065
     Dates: start: 20190128
  2. TECFIDERA [Suspect]
     Active Substance: DIMETHYL FUMARATE
     Route: 048
     Dates: start: 20190131

REACTIONS (6)
  - Hypoaesthesia [Not Recovered/Not Resolved]
  - Product dose omission [Not Recovered/Not Resolved]
  - Diarrhoea [Unknown]
  - Visual acuity reduced [Unknown]
  - Fatigue [Not Recovered/Not Resolved]
  - Memory impairment [Unknown]
